FAERS Safety Report 13910710 (Version 1)
Quarter: 2017Q3

REPORT INFORMATION
  Report Type: Spontaneous
  Country: US (occurrence: None)
  Receive Date: 20170825
  Receipt Date: 20170825
  Transmission Date: 20171127
  Serious: Yes (Hospitalization)
  Sender: FDA-Public Use
  Company Number: None

PATIENT
  Age: 16 Year
  Sex: Female

DRUGS (18)
  1. FUROSEMIDE. [Concomitant]
     Active Substance: FUROSEMIDE
  2. ALDACTAZIDE [Concomitant]
     Active Substance: HYDROCHLOROTHIAZIDE\SPIRONOLACTONE
  3. ASPIRIN. [Concomitant]
     Active Substance: ASPIRIN
  4. ONDANSETRON [Concomitant]
     Active Substance: ONDANSETRON
  5. SILDENAFIL. [Concomitant]
     Active Substance: SILDENAFIL
  6. CYPROHEPTADINE. [Concomitant]
     Active Substance: CYPROHEPTADINE
  7. VITAMIN D3 [Concomitant]
     Active Substance: CHOLECALCIFEROL
  8. HYCET [Concomitant]
     Active Substance: ACETAMINOPHEN\HYDROCODONE BITARTRATE
  9. OPSUMIT [Suspect]
     Active Substance: MACITENTAN
     Indication: HEART DISEASE CONGENITAL
     Route: 048
     Dates: start: 201704, end: 201707
  10. ZINC SULFATE [Concomitant]
     Active Substance: ZINC SULFATE\ZINC SULFATE ANHYDROUS
  11. OPSUMIT [Suspect]
     Active Substance: MACITENTAN
     Indication: PULMONARY ARTERIAL HYPERTENSION
     Route: 048
     Dates: start: 201704, end: 201707
  12. GABAPENTIN. [Concomitant]
     Active Substance: GABAPENTIN
  13. CALCIUM CARBONATE. [Concomitant]
     Active Substance: CALCIUM CARBONATE
  14. K-LOR CON [Concomitant]
  15. LOPERAMIDE [Concomitant]
     Active Substance: LOPERAMIDE
  16. OPSUMIT [Suspect]
     Active Substance: MACITENTAN
     Indication: CONNECTIVE TISSUE DISORDER
     Route: 048
     Dates: start: 201704, end: 201707
  17. ENOXAPARIN [Concomitant]
     Active Substance: ENOXAPARIN
  18. FERROUS SULFATE. [Concomitant]
     Active Substance: FERROUS SULFATE

REACTIONS (2)
  - Weight decreased [None]
  - Electrolyte imbalance [None]

NARRATIVE: CASE EVENT DATE: 20170627
